FAERS Safety Report 8362838-8 (Version None)
Quarter: 2012Q2

REPORT INFORMATION
  Report Type: 
  Country: None (occurrence: None)
  Receive Date: 20120516
  Receipt Date: 20120514
  Transmission Date: 20120825
  Serious: Yes (Other)
  Sender: FDA-Public Use
  Company Number: PHHY2012JP039234

PATIENT
  Age: 64 Year
  Sex: Male

DRUGS (1)
  1. ZOMETA [Suspect]
     Indication: METASTASES TO BONE

REACTIONS (5)
  - IMPAIRED HEALING [None]
  - EXPOSED BONE IN JAW [None]
  - GINGIVAL SWELLING [None]
  - OSTEOMYELITIS [None]
  - TRISMUS [None]
